FAERS Safety Report 18461841 (Version 2)
Quarter: 2022Q3

REPORT INFORMATION
  Report Type: Spontaneous
  Country: CA (occurrence: CA)
  Receive Date: 20201104
  Receipt Date: 20220711
  Transmission Date: 20221027
  Serious: Yes (Hospitalization, Other)
  Sender: FDA-Public Use
  Company Number: CA-GLAXOSMITHKLINE-CA2020GSK217863

PATIENT

DRUGS (2)
  1. AVANDIA [Suspect]
     Active Substance: ROSIGLITAZONE MALEATE
     Indication: Diabetes mellitus
     Dosage: UNK, QD
     Route: 048
     Dates: start: 20060104, end: 20101205
  2. AVANDAMET [Suspect]
     Active Substance: METFORMIN HYDROCHLORIDE\ROSIGLITAZONE MALEATE
     Indication: Diabetes mellitus
     Dosage: UNK
     Route: 048
     Dates: start: 200607, end: 201012

REACTIONS (8)
  - Angina unstable [Unknown]
  - Acute coronary syndrome [Unknown]
  - Angina pectoris [Unknown]
  - Coronary artery disease [Unknown]
  - Cardiac disorder [Unknown]
  - Stent placement [Unknown]
  - Angioplasty [Unknown]
  - Diabetic nephropathy [Unknown]
